FAERS Safety Report 9323455 (Version 3)
Quarter: 2014Q1

REPORT INFORMATION
  Report Type: Spontaneous
  Country: US (occurrence: US)
  Receive Date: 20130603
  Receipt Date: 20140130
  Transmission Date: 20141002
  Serious: No
  Sender: FDA-Public Use
  Company Number: US-PFIZER INC-2013164472

PATIENT
  Age: 75 Year
  Sex: Male

DRUGS (2)
  1. INLYTA [Suspect]
     Indication: RENAL CANCER METASTATIC
     Dosage: 5 MG, 2X/DAY (TAKE 1 TABLET EVERY 12 HOURS)
     Route: 048
     Dates: start: 20130428
  2. INLYTA [Suspect]
     Dosage: UNK

REACTIONS (5)
  - Fatigue [Unknown]
  - Eyelid oedema [Unknown]
  - Weight decreased [Recovered/Resolved]
  - Hypothyroidism [Unknown]
  - Diarrhoea [Unknown]
